FAERS Safety Report 18309603 (Version 1)
Quarter: 2020Q3

REPORT INFORMATION
  Report Type: Spontaneous
  Country: TR (occurrence: TR)
  Receive Date: 20200925
  Receipt Date: 20200925
  Transmission Date: 20201103
  Serious: Yes (Hospitalization, Other)
  Sender: FDA-Public Use
  Company Number: TR-LUPIN PHARMACEUTICALS INC.-2020-06428

PATIENT
  Age: 47 Year
  Sex: Male

DRUGS (1)
  1. HYDROXYCHLOROQUINE [Suspect]
     Active Substance: HYDROXYCHLOROQUINE
     Indication: COVID-19 PROPHYLAXIS
     Dosage: 200 MILLIGRAM, SINGLE DOSE
     Route: 065

REACTIONS (3)
  - Ocular myasthenia [Recovered/Resolved]
  - Myasthenic syndrome [Recovered/Resolved]
  - Off label use [Unknown]
